FAERS Safety Report 7901382-6 (Version None)
Quarter: 2011Q4

REPORT INFORMATION
  Report Type: 
  Country: None (occurrence: None)
  Receive Date: 20111108
  Receipt Date: 20111101
  Transmission Date: 20120403
  Serious: Yes (Death, Other)
  Sender: FDA-Public Use
  Company Number: PHHY2011CH96778

PATIENT
  Age: 86 Year
  Sex: Female

DRUGS (12)
  1. PREDNISON GALEPHARM [Concomitant]
     Dosage: 7.5 MG, DAILY
     Dates: end: 20110909
  2. PARAGOL [Concomitant]
  3. MARCUMAR [Concomitant]
     Indication: ATRIAL FIBRILLATION
     Dosage: UNK
     Dates: start: 20110501, end: 20110901
  4. HALDOL [Concomitant]
     Dosage: 11 DROPS PER DAY
     Dates: start: 20110906, end: 20110909
  5. DIGOXIN [Suspect]
     Dosage: 0.25 MG, DAILY
     Route: 048
     Dates: start: 20110905, end: 20110908
  6. DIGOXIN [Suspect]
     Indication: CARDIAC FAILURE
     Dosage: 0.125 MG, DAILY
     Route: 048
     Dates: start: 20110810, end: 20110904
  7. QUETIAPINE [Concomitant]
     Dosage: 5 MG, BID
     Route: 048
     Dates: end: 20110831
  8. ACETAMINOPHEN [Concomitant]
  9. DIGOXIN [Suspect]
     Dosage: 0.375 MG, DAILY
     Route: 048
     Dates: end: 20110909
  10. TORSEMIDE [Concomitant]
     Indication: CARDIAC FAILURE
     Dosage: 150 MG, DAILY
     Dates: start: 20110809
  11. PREDNISON GALEPHARM [Concomitant]
     Dosage: 10 MG, DAILY
     Dates: start: 20110905
  12. SEROQUEL [Concomitant]
     Dosage: 25 - 35 MG DAILY
     Route: 048
     Dates: start: 20110831, end: 20110906

REACTIONS (12)
  - HAEMATOCHEZIA [None]
  - PNEUMOTHORAX [None]
  - GASTROINTESTINAL HAEMORRHAGE [None]
  - HAEMATEMESIS [None]
  - THROMBOCYTOPENIA [None]
  - INTERNATIONAL NORMALISED RATIO INCREASED [None]
  - MELAENA [None]
  - GASTRIC ULCER [None]
  - HAEMORRHAGIC ANAEMIA [None]
  - PNEUMONIA [None]
  - RENAL FAILURE CHRONIC [None]
  - DELIRIUM [None]
